FAERS Safety Report 8852240 (Version 1)
Quarter: 2012Q4

REPORT INFORMATION
  Report Type: 
  Country: US (occurrence: US)
  Receive Date: 20121022
  Receipt Date: 20121022
  Transmission Date: 20130627
  Serious: No
  Sender: FDA-Public Use
  Company Number: US-MYLANLABS-2011S1020054

PATIENT
  Age: 66 Year
  Sex: Male

DRUGS (1)
  1. CARVEDILOL [Suspect]
     Indication: BLOOD PRESSURE INCREASED
     Dates: start: 20110909

REACTIONS (2)
  - Neuralgia [Not Recovered/Not Resolved]
  - Insomnia [Not Recovered/Not Resolved]
